FAERS Safety Report 17048735 (Version 1)
Quarter: 2019Q4

REPORT INFORMATION
  Report Type: Spontaneous
  Country: FR (occurrence: FR)
  Receive Date: 20191119
  Receipt Date: 20191119
  Transmission Date: 20200122
  Serious: Yes (Disabling, Congenital Anomaly)
  Sender: FDA-Public Use
  Company Number: FR-PFIZER INC-2019495445

PATIENT
  Age: 4 Year
  Sex: Male

DRUGS (3)
  1. DIGOXINE NATIVELLE [Suspect]
     Active Substance: DIGOXIN
     Indication: TACHYCARDIA FOETAL
     Dosage: UNK
     Route: 064
     Dates: start: 201106, end: 20110831
  2. CORDARONE [Suspect]
     Active Substance: AMIODARONE HYDROCHLORIDE
     Indication: TACHYCARDIA
     Dosage: UNK
     Route: 048
     Dates: start: 20110831, end: 201208
  3. FLECAINE [Suspect]
     Active Substance: FLECAINIDE
     Indication: TACHYCARDIA FOETAL
     Dosage: UNK
     Route: 064
     Dates: start: 201106, end: 20110831

REACTIONS (6)
  - Off label use [Unknown]
  - Anxiety [Recovered/Resolved with Sequelae]
  - Disturbance in attention [Recovered/Resolved with Sequelae]
  - Dysgraphia [Recovered/Resolved with Sequelae]
  - Language disorder [Recovered/Resolved with Sequelae]
  - Product use issue [Unknown]

NARRATIVE: CASE EVENT DATE: 2016
